FAERS Safety Report 4782490-8 (Version None)
Quarter: 2005Q3

REPORT INFORMATION
  Report Type: 
  Country: None (occurrence: None)
  Receive Date: 20050929
  Receipt Date: 20041229
  Transmission Date: 20060218
  Serious: No
  Sender: FDA-Public Use
  Company Number: 393076

PATIENT
  Age: 60 Year
  Sex: Male

DRUGS (8)
  1. COREG [Suspect]
     Dosage: 6.25MG PER DAY
     Route: 048
  2. DIGOXIN [Concomitant]
  3. SPIRONOLACTONE [Concomitant]
  4. COZAAR [Concomitant]
  5. INSULIN [Concomitant]
  6. LASIX [Concomitant]
  7. CLEAR LUNGS [Concomitant]
  8. HAWTHORN BERRY [Concomitant]

REACTIONS (6)
  - ABDOMINAL PAIN UPPER [None]
  - CARDIOVASCULAR DISORDER [None]
  - CHEST PAIN [None]
  - DIZZINESS [None]
  - DYSPNOEA [None]
  - HYPOAESTHESIA [None]
